FAERS Safety Report 15096285 (Version 4)
Quarter: 2019Q4

REPORT INFORMATION
  Report Type: Spontaneous
  Country: US (occurrence: US)
  Receive Date: 20180702
  Receipt Date: 20191204
  Transmission Date: 20200122
  Serious: No
  Sender: FDA-Public Use
  Company Number: US-PFIZER INC-2018262834

PATIENT
  Age: 73 Year
  Sex: Female

DRUGS (12)
  1. DOCETAXEL. [Suspect]
     Active Substance: DOCETAXEL
     Indication: BREAST CANCER FEMALE
     Dosage: 75 MG, CYCLIC (SIX CYCLES, EVERY THREE WEEKS)
     Dates: start: 20140318, end: 20140813
  2. CLOPIDOGREL [Concomitant]
     Active Substance: CLOPIDOGREL BISULFATE
     Dosage: UNK
     Dates: start: 20070101
  3. FOSINOPRIL [Concomitant]
     Active Substance: FOSINOPRIL
     Dosage: UNK
     Dates: start: 20070101
  4. TAXOTERE [Concomitant]
     Active Substance: DOCETAXEL
     Indication: CHEMOTHERAPY
     Dosage: UNK
  5. NOVOLOG [Concomitant]
     Active Substance: INSULIN ASPART
     Dosage: UNK
     Dates: start: 20070101
  6. ISOSORBIDE MONONITRATE. [Concomitant]
     Active Substance: ISOSORBIDE MONONITRATE
     Dosage: UNK
     Dates: start: 20070101
  7. ALOXI [Concomitant]
     Active Substance: PALONOSETRON HYDROCHLORIDE
     Indication: CHEMOTHERAPY
     Dosage: UNK
  8. COREG [Concomitant]
     Active Substance: CARVEDILOL
     Dosage: UNK
     Dates: start: 20070101
  9. CYTOXAN [Concomitant]
     Active Substance: CYCLOPHOSPHAMIDE
     Indication: CHEMOTHERAPY
     Dosage: UNK
  10. NEOSAR [Concomitant]
     Active Substance: CYCLOPHOSPHAMIDE
     Indication: CHEMOTHERAPY
     Dosage: UNK
  11. LEVEMIR [Concomitant]
     Active Substance: INSULIN DETEMIR
     Dosage: UNK
     Dates: start: 20070101
  12. DECADRON [Concomitant]
     Active Substance: DEXAMETHASONE
     Indication: CHEMOTHERAPY
     Dosage: UNK

REACTIONS (5)
  - Hair texture abnormal [Not Recovered/Not Resolved]
  - Hair colour changes [Not Recovered/Not Resolved]
  - Hair disorder [Not Recovered/Not Resolved]
  - Madarosis [Not Recovered/Not Resolved]
  - Alopecia [Not Recovered/Not Resolved]

NARRATIVE: CASE EVENT DATE: 20140401
